FAERS Safety Report 9475726 (Version 3)
Quarter: 2013Q4

REPORT INFORMATION
  Report Type: Report from Study
  Country: DE (occurrence: DE)
  Receive Date: 20130826
  Receipt Date: 20131012
  Transmission Date: 20140711
  Serious: Yes (Life-Threatening, Hospitalization)
  Sender: FDA-Public Use
  Company Number: DE-AMGEN-DEUCT2013059676

PATIENT
  Age: 57 Year
  Sex: Female
  Weight: 70 kg

DRUGS (3)
  1. PANITUMUMAB [Suspect]
     Indication: OVARIAN CANCER
     Dosage: 9 MG/KG, UNK
     Route: 042
     Dates: start: 20130805
  2. GEMCITABINE [Concomitant]
     Indication: OVARIAN CANCER
     Dosage: 1000 MG/M2, UNK
     Route: 042
     Dates: start: 20130805
  3. CARBOPLATIN [Concomitant]
     Indication: OVARIAN CANCER
     Dosage: 356.41 MG/M2, UNK
     Route: 042
     Dates: start: 20130805

REACTIONS (3)
  - Neutropenia [Recovered/Resolved]
  - Thrombocytopenia [Recovered/Resolved]
  - Leukopenia [Recovered/Resolved]
